FAERS Safety Report 9506163 (Version 1)
Quarter: 2013Q1

REPORT INFORMATION
  Report Type: Spontaneous
  Country: US (occurrence: None)
  Receive Date: 20130305
  Receipt Date: 20130305
  Transmission Date: 20140127
  Serious: Yes (Other)
  Sender: FDA-Public Use
  Company Number: 163-21880-11111730

PATIENT
  Age: 84 Year
  Sex: Male
  Weight: 88.91 kg

DRUGS (1)
  1. REVLIMID [Suspect]
     Indication: PLASMA CELL MYELOMA
     Dosage: DAILY FOR 21 DAYS ON 7 DAYS OFF
     Route: 048
     Dates: start: 20111011

REACTIONS (6)
  - Pulmonary thrombosis [None]
  - Haemoptysis [None]
  - Herpes zoster [None]
  - Rash [None]
  - Skin burning sensation [None]
  - Pruritus [None]
